FAERS Safety Report 17966333 (Version 1)
Quarter: 2020Q2

REPORT INFORMATION
  Report Type: Spontaneous
  Country: US (occurrence: US)
  Receive Date: 20200630
  Receipt Date: 20200630
  Transmission Date: 20200714
  Serious: No
  Sender: FDA-Public Use
  Company Number: US-SHIRE-US202020864

PATIENT
  Sex: Female

DRUGS (1)
  1. GATTEX [Suspect]
     Active Substance: TEDUGLUTIDE\WATER
     Indication: PRODUCT USED FOR UNKNOWN INDICATION
     Dosage: 0.15 UNK, 1X/DAY:QD
     Route: 058
     Dates: start: 20191216

REACTIONS (3)
  - Fluid imbalance [Unknown]
  - Weight increased [Unknown]
  - Body height increased [Unknown]
